FAERS Safety Report 5201569-X (Version None)
Quarter: 2006Q4

REPORT INFORMATION
  Report Type: 
  Country: None (occurrence: None)
  Receive Date: 20061006
  Receipt Date: 20060519
  Transmission Date: 20070319
  Serious: Yes (Other)
  Sender: FDA-Public Use
  Company Number: PHEH2006US06598

PATIENT
  Age: 57 Year
  Sex: Female

DRUGS (8)
  1. ESTALIS COMBIPATCH (ESTRADIOL, NORETHISTERONE ACETATE) TRANS-THERAPEUT [Suspect]
     Indication: HORMONE REPLACEMENT THERAPY
     Dosage: TRANSDERMAL
     Route: 062
     Dates: start: 19960101, end: 20050101
  2. ESTRADIOL [Suspect]
     Indication: DRUG USE FOR UNKNOWN INDICATION
  3. MEDROXYPROGESTERONE [Suspect]
     Indication: DRUG USE FOR UNKNOWN INDICATION
  4. PREMPRO [Suspect]
     Indication: DRUG USE FOR UNKNOWN INDICATION
  5. PROVERA [Suspect]
     Indication: DRUG USE FOR UNKNOWN INDICATION
  6. FEMHRT [Suspect]
     Indication: DRUG USE FOR UNKNOWN INDICATION
  7. ESTRACE [Suspect]
     Indication: DRUG USE FOR UNKNOWN INDICATION
  8. ESTRATEST [Suspect]

REACTIONS (3)
  - BIOPSY BREAST ABNORMAL [None]
  - BREAST CANCER [None]
  - MALIGNANT BREAST LUMP REMOVAL [None]
